FAERS Safety Report 8853910 (Version 3)
Quarter: 2012Q4

REPORT INFORMATION
  Report Type: 
  Country: JP (occurrence: JP)
  Receive Date: 20121022
  Receipt Date: 20121212
  Transmission Date: 20130627
  Serious: Yes (Other)
  Sender: FDA-Public Use
  Company Number: PHHY2012JP093792

PATIENT
  Age: 62 Year
  Sex: Female

DRUGS (3)
  1. FAMVIR [Suspect]
     Indication: HERPES ZOSTER
     Dosage: 500 mg, TID
     Route: 048
     Dates: start: 20121009, end: 20121011
  2. LOXONIN [Concomitant]
     Dosage: 180 mg, UNK
     Route: 048
     Dates: start: 20121009, end: 20121011
  3. METHYCOBAL [Concomitant]
     Dosage: 3 DF, UNK
     Route: 048
     Dates: start: 20121009, end: 20121011

REACTIONS (5)
  - Amnesia [Recovering/Resolving]
  - Altered state of consciousness [Recovering/Resolving]
  - Memory impairment [Recovered/Resolved]
  - Malaise [Recovered/Resolved]
  - Headache [Recovered/Resolved]
